FAERS Safety Report 4530440-1 (Version None)
Quarter: 2004Q4

REPORT INFORMATION
  Report Type: 
  Country: None (occurrence: None)
  Receive Date: 20041216
  Receipt Date: 20041216
  Transmission Date: 20050328
  Serious: Yes (Life-Threatening, Hospitalization, Disabling)
  Sender: FDA-Public Use
  Company Number: None

PATIENT
  Sex: Female
  Weight: 92.2 kg

DRUGS (11)
  1. PLAVIX [Suspect]
     Indication: CEREBROVASCULAR ACCIDENT
     Dosage: 75MG    QD    ORAL
     Route: 048
     Dates: start: 20011128, end: 20041128
  2. PLAVIX [Suspect]
     Indication: PROPHYLAXIS
     Dosage: 75MG    QD    ORAL
     Route: 048
     Dates: start: 20011128, end: 20041128
  3. ASPIRIN [Concomitant]
  4. PERPHENAZINE [Concomitant]
  5. AMBIEN [Concomitant]
  6. EFFEXOR XR [Concomitant]
  7. PAXIL [Concomitant]
  8. ZETIA [Concomitant]
  9. DETROL LA [Concomitant]
  10. LIPITOR [Concomitant]
  11. NEURONTIN [Concomitant]

REACTIONS (2)
  - CEREBRAL ARTERY OCCLUSION [None]
  - THROMBOTIC THROMBOCYTOPENIC PURPURA [None]
